FAERS Safety Report 4598106-X (Version None)
Quarter: 2005Q1

REPORT INFORMATION
  Report Type: 
  Country: None (occurrence: None)
  Receive Date: 20050301
  Receipt Date: 20050301
  Transmission Date: 20050727
  Serious: Yes (Life-Threatening)
  Sender: FDA-Public Use
  Company Number: None

PATIENT
  Sex: Female
  Weight: 58.0604 kg

DRUGS (2)
  1. CELEBREX [Suspect]
     Indication: ARTHRALGIA
     Dates: start: 20040714, end: 20040728
  2. BEXTRA [Suspect]
     Indication: ARTHRALGIA
     Dates: start: 20040729, end: 20040806

REACTIONS (4)
  - DRUG ERUPTION [None]
  - DRUG INEFFECTIVE [None]
  - MALAISE [None]
  - RASH GENERALISED [None]
